FAERS Safety Report 13964465 (Version 1)
Quarter: 2017Q3

REPORT INFORMATION
  Report Type: Spontaneous
  Country: US (occurrence: US)
  Receive Date: 20170913
  Receipt Date: 20170913
  Transmission Date: 20171128
  Serious: Yes (Disabling, Other)
  Sender: FDA-Public Use
  Company Number: None

PATIENT
  Age: 30 Year
  Sex: Female
  Weight: 60.75 kg

DRUGS (11)
  1. LEVAQUIN [Suspect]
     Active Substance: LEVOFLOXACIN
     Indication: URINARY TRACT INFECTION
  2. LAURICIDIN [Concomitant]
  3. BONE BROTH [Concomitant]
  4. OMEGA 3 [Concomitant]
     Active Substance: OMEGA-3 FATTY ACIDS
  5. BEEF LIVER. [Concomitant]
     Active Substance: BEEF LIVER
  6. GI SYNERGY [Concomitant]
  7. MAGNESIUM [Concomitant]
     Active Substance: MAGNESIUM
  8. VITAMIN E [Concomitant]
     Active Substance: .ALPHA.-TOCOPHEROL
  9. PRESCRIPT ASSIST [Concomitant]
  10. MEGASPORBIOTIC [Concomitant]
  11. INTERPHASE [Concomitant]

REACTIONS (17)
  - Lip swelling [None]
  - Anxiety [None]
  - Hypoaesthesia [None]
  - Dizziness [None]
  - Herpes zoster [None]
  - Lip dry [None]
  - Neuropathy peripheral [None]
  - Gait disturbance [None]
  - Hormone level abnormal [None]
  - Impaired work ability [None]
  - Weight increased [None]
  - Lip exfoliation [None]
  - Dysstasia [None]
  - Gastrointestinal bacterial overgrowth [None]
  - Paraesthesia [None]
  - Vertigo [None]
  - Fatigue [None]

NARRATIVE: CASE EVENT DATE: 20131028
